FAERS Safety Report 15915369 (Version 1)
Quarter: 2019Q1

REPORT INFORMATION
  Report Type: Spontaneous
  Country: US (occurrence: US)
  Receive Date: 20190204
  Receipt Date: 20190204
  Transmission Date: 20190417
  Serious: No
  Sender: FDA-Public Use
  Company Number: US-ABBVIE-19K-163-2615423-00

PATIENT
  Sex: Female

DRUGS (1)
  1. HUMIRA [Suspect]
     Active Substance: ADALIMUMAB
     Indication: HIDRADENITIS
     Route: 058
     Dates: start: 2016

REACTIONS (6)
  - Skin disorder [Unknown]
  - Hidradenitis [Unknown]
  - Alopecia [Unknown]
  - Rhinorrhoea [Unknown]
  - Dry skin [Unknown]
  - Dry eye [Unknown]
